FAERS Safety Report 8543186-X (Version None)
Quarter: 2012Q3

REPORT INFORMATION
  Report Type: 
  Country: None (occurrence: None)
  Receive Date: 20120727
  Receipt Date: 20120719
  Transmission Date: 20120928
  Serious: No
  Sender: FDA-Public Use
  Company Number: JP-MSD-1206USA01492

PATIENT

DRUGS (2)
  1. SITAGLIPTIN PHOSPHATE [Suspect]
     Indication: TYPE 2 DIABETES MELLITUS
     Dosage: 50 MG, UNK
     Route: 048
     Dates: start: 20120401, end: 20120507
  2. INSULIN [Concomitant]
     Dosage: UNK UNK, QD

REACTIONS (1)
  - DRUG ERUPTION [None]
